FAERS Safety Report 15327059 (Version 1)
Quarter: 2018Q3

REPORT INFORMATION
  Report Type: Spontaneous
  Country: DE (occurrence: DE)
  Receive Date: 20180828
  Receipt Date: 20180828
  Transmission Date: 20181010
  Serious: Yes (Other)
  Sender: FDA-Public Use
  Company Number: DE-PFIZER INC-2018339449

PATIENT
  Age: 74 Year
  Sex: Female

DRUGS (1)
  1. SUNITINIB MALATE. [Suspect]
     Active Substance: SUNITINIB MALATE
     Dosage: 50 MG, (1?0?0) 4?2 WEEK SCHEDULE
     Route: 048
     Dates: start: 201410, end: 201511

REACTIONS (5)
  - Thrombocytopenia [Unknown]
  - Blood pressure increased [Unknown]
  - Acute kidney injury [Unknown]
  - Myxoedema [Unknown]
  - Hypothyroidism [Unknown]

NARRATIVE: CASE EVENT DATE: 201411
